FAERS Safety Report 7171116-4 (Version None)
Quarter: 2010Q4

REPORT INFORMATION
  Report Type: 
  Country: None (occurrence: None)
  Receive Date: 20101217
  Receipt Date: 20101116
  Transmission Date: 20110411
  Serious: Yes (Hospitalization)
  Sender: FDA-Public Use
  Company Number: PHHO2010US17491

PATIENT

DRUGS (8)
  1. MYCOPHENOLIC ACID [Suspect]
     Indication: RENAL TRANSPLANT
     Dosage: 720 MG, BID
     Route: 048
     Dates: start: 20101106
  2. MULTIPLE VITAMIN [Concomitant]
     Dosage: 1TAB DAILY
     Route: 048
     Dates: start: 20101106
  3. VALCYTE [Concomitant]
     Dosage: 450GM EVERY 48 HOURS
     Route: 048
     Dates: start: 20101106
  4. CATAPRES [Concomitant]
     Dosage: 0.2 MG, TID
     Route: 048
     Dates: start: 20101106
  5. INSULIN GLARGINE [Concomitant]
     Dosage: 10 UNITS AT BEDTIME
     Route: 058
     Dates: start: 20101106
  6. PROGRAF [Concomitant]
     Dosage: 2 MG, BID
     Route: 048
     Dates: start: 20101106
  7. NORVASC [Concomitant]
     Dosage: 10 MG, BID
     Route: 048
     Dates: start: 20100316
  8. ASCORBIC ACID [Concomitant]
     Dosage: 1000 MG, QD
     Route: 048
     Dates: start: 20100716

REACTIONS (5)
  - CYTOMEGALOVIRUS INFECTION [None]
  - HEPATIC CIRRHOSIS [None]
  - KIDNEY TRANSPLANT REJECTION [None]
  - PARACENTESIS [None]
  - THERAPEUTIC RESPONSE UNEXPECTED [None]
